FAERS Safety Report 7949143-6 (Version None)
Quarter: 2011Q4

REPORT INFORMATION
  Report Type: 
  Country: None (occurrence: None)
  Receive Date: 20111130
  Receipt Date: 20111128
  Transmission Date: 20120403
  Serious: Yes (Death)
  Sender: FDA-Public Use
  Company Number: AU-B.I. PHARMACEUTICALS,INC./RIDGEFIELD-2011-AU-02288AU

PATIENT
  Sex: Female
  Weight: 83 kg

DRUGS (10)
  1. PRAMIPEXOLE DIHYDROCHLORIDE [Concomitant]
     Dosage: 3 TABLETS IN THE EVENING
  2. LEXAPRO [Concomitant]
     Dosage: 20 MG
  3. LIPITOR [Concomitant]
     Dosage: 40 MG
  4. METFORMIN HCL [Concomitant]
     Dosage: 500 MG
  5. PRADAXA [Suspect]
     Indication: ATRIAL FIBRILLATION
     Dosage: 220 MG
     Dates: start: 20111020, end: 20111114
  6. ENDEP [Concomitant]
     Dosage: 50 MG
  7. MICARDIS HCT [Concomitant]
     Dosage: 40/12.5 MG DAILY
  8. NORSPAN [Concomitant]
  9. LASIX [Concomitant]
     Dosage: 40 MG
  10. NEBIVOLOL HCL [Concomitant]
     Dosage: 1.25 MG

REACTIONS (1)
  - MYOCARDIAL INFARCTION [None]
